FAERS Safety Report 14439177 (Version 4)
Quarter: 2020Q2

REPORT INFORMATION
  Report Type: Spontaneous
  Country: US (occurrence: US)
  Receive Date: 20180125
  Receipt Date: 20200515
  Transmission Date: 20200713
  Serious: Yes (Hospitalization)
  Sender: FDA-Public Use
  Company Number: US-JNJFOC-20180119134

PATIENT
  Age: 63 Year
  Sex: Female

DRUGS (5)
  1. XARELTO [Suspect]
     Active Substance: RIVAROXABAN
     Indication: DEEP VEIN THROMBOSIS
  2. HEPARIN [Suspect]
     Active Substance: HEPARIN SODIUM
     Indication: TROPONIN INCREASED
     Route: 065
     Dates: start: 20170611
  3. XARELTO [Suspect]
     Active Substance: RIVAROXABAN
     Indication: THROMBOSIS
     Route: 048
     Dates: start: 20170322, end: 20170611
  4. XARELTO [Suspect]
     Active Substance: RIVAROXABAN
     Indication: KNEE OPERATION
  5. HEPARIN [Suspect]
     Active Substance: HEPARIN SODIUM
     Indication: ANAEMIA

REACTIONS (2)
  - Haemorrhage intracranial [Recovering/Resolving]
  - Aneurysm ruptured [Recovering/Resolving]

NARRATIVE: CASE EVENT DATE: 20170611
